FAERS Safety Report 20165530 (Version 1)
Quarter: 2021Q4

REPORT INFORMATION
  Report Type: Spontaneous
  Country: US (occurrence: US)
  Receive Date: 20211209
  Receipt Date: 20211209
  Transmission Date: 20220303
  Serious: Yes (Other)
  Sender: FDA-Public Use
  Company Number: US-MLMSERVICE-20211125-3237140-1

PATIENT
  Age: 66 Year
  Sex: Female

DRUGS (1)
  1. ACYCLOVIR [Suspect]
     Active Substance: ACYCLOVIR
     Indication: Evidence based treatment
     Dosage: HIGH DOSE
     Route: 042

REACTIONS (1)
  - Drug-induced liver injury [Recovered/Resolved]
